FAERS Safety Report 14765210 (Version 2)
Quarter: 2018Q2

REPORT INFORMATION
  Report Type: Spontaneous
  Country: NA (occurrence: NA)
  Receive Date: 20180416
  Receipt Date: 20180419
  Transmission Date: 20180711
  Serious: Yes (Hospitalization)
  Sender: FDA-Public Use
  Company Number: NA-GE HEALTHCARE LIFE SCIENCES-2018CSU001431

PATIENT

DRUGS (1)
  1. OMNIPAQUE [Suspect]
     Active Substance: IOHEXOL
     Indication: PRODUCT USED FOR UNKNOWN INDICATION
     Dosage: 50 ML, SINGLE
     Route: 065
     Dates: start: 20180328, end: 20180328

REACTIONS (3)
  - Dyspnoea [Recovered/Resolved]
  - Chills [Recovered/Resolved]
  - Abdominal pain [Recovered/Resolved]

NARRATIVE: CASE EVENT DATE: 20180328
